FAERS Safety Report 15534497 (Version 1)
Quarter: 2018Q4

REPORT INFORMATION
  Report Type: Spontaneous
  Country: US (occurrence: US)
  Receive Date: 20181022
  Receipt Date: 20181022
  Transmission Date: 20190205
  Serious: Yes (Hospitalization)
  Sender: FDA-Public Use
  Company Number: US-MANKIND-000074

PATIENT
  Age: 9 Year
  Sex: Male

DRUGS (3)
  1. RISPERIDONE. [Suspect]
     Active Substance: RISPERIDONE
     Indication: AUTISM SPECTRUM DISORDER
     Dosage: DISCONTINUED FOR A PERIOD OF 4 DAYS
  2. CLONIDINE. [Concomitant]
     Active Substance: CLONIDINE
     Indication: ATTENTION DEFICIT/HYPERACTIVITY DISORDER
     Dosage: DAILY
  3. DEXMETHYLPHENIDATE/DEXMETHYLPHENIDATE HYDROCHLORI [Concomitant]
     Active Substance: DEXMETHYLPHENIDATE HYDROCHLORIDE
     Indication: ATTENTION DEFICIT/HYPERACTIVITY DISORDER
     Dosage: 7.5 MG DAILY IN DIVIDED DOSES

REACTIONS (3)
  - Hyperprolactinaemia [Unknown]
  - Dyskinesia [Recovering/Resolving]
  - Drug withdrawal syndrome [Unknown]
